FAERS Safety Report 9322775 (Version 1)
Quarter: 2013Q2

REPORT INFORMATION
  Report Type: Report from Study
  Country: CA (occurrence: CA)
  Receive Date: 20130601
  Receipt Date: 20130601
  Transmission Date: 20140414
  Serious: Yes (Death)
  Sender: FDA-Public Use
  Company Number: CA-ROCHE-1231365

PATIENT
  Sex: Male
  Weight: 91 kg

DRUGS (6)
  1. AVASTIN [Suspect]
     Indication: GLIOBLASTOMA
     Route: 042
     Dates: start: 20121113, end: 20121211
  2. HYDROCHLOROTHIAZIDE [Concomitant]
  3. PROZAC [Concomitant]
  4. CLONAZEPAM [Concomitant]
     Route: 065
  5. CRESTOR [Concomitant]
  6. RANITIDIN [Concomitant]

REACTIONS (1)
  - Death [Fatal]
